FAERS Safety Report 15765926 (Version 3)
Quarter: 2019Q3

REPORT INFORMATION
  Report Type: Spontaneous
  Country: US (occurrence: US)
  Receive Date: 20181227
  Receipt Date: 20190909
  Transmission Date: 20191004
  Serious: Yes (Other)
  Sender: FDA-Public Use
  Company Number: US-SA-2018SA390942

PATIENT
  Age: 61 Year
  Sex: Female
  Weight: 139 kg

DRUGS (6)
  1. NEOSAR [Concomitant]
     Active Substance: CYCLOPHOSPHAMIDE
     Indication: BREAST CANCER FEMALE
     Dosage: 1140 MG
  2. ALOXI [Concomitant]
     Active Substance: PALONOSETRON HYDROCHLORIDE
     Dosage: 0.25 MG
  3. ADRIAMYCIN [Concomitant]
     Active Substance: DOXORUBICIN HYDROCHLORIDE
     Indication: BREAST CANCER FEMALE
     Dosage: 114 MG
  4. TAXOTERE [Suspect]
     Active Substance: DOCETAXEL
     Indication: BREAST CANCER FEMALE
     Dosage: 171 MG, Q3W
     Route: 042
  5. TAXOTERE [Suspect]
     Active Substance: DOCETAXEL
     Dosage: 171 MG, Q3W
     Route: 042
     Dates: start: 201205, end: 201205
  6. DECADRON [Concomitant]
     Active Substance: DEXAMETHASONE
     Dosage: 20 MG

REACTIONS (3)
  - Alopecia [Recovering/Resolving]
  - Psychological trauma [Unknown]
  - Emotional distress [Unknown]
